FAERS Safety Report 13841370 (Version 2)
Quarter: 2018Q2

REPORT INFORMATION
  Report Type: Report from Study
  Country: JP (occurrence: JP)
  Receive Date: 20170807
  Receipt Date: 20180601
  Transmission Date: 20180711
  Serious: Yes (Other)
  Sender: FDA-Public Use
  Company Number: JP-PFIZER INC-2017334339

PATIENT
  Age: 71 Year
  Sex: Male

DRUGS (25)
  1. PYRAZINAMIDE. [Suspect]
     Active Substance: PYRAZINAMIDE
     Indication: PULMONARY TUBERCULOSIS
     Dosage: UNK
     Route: 048
     Dates: start: 20141104, end: 20141116
  2. CYCLOSERINE. [Concomitant]
     Active Substance: CYCLOSERINE
     Indication: PULMONARY TUBERCULOSIS
     Dosage: UNK
     Dates: start: 20161101
  3. LEVOFLOXACIN HEMIHYDRATE [Concomitant]
     Active Substance: LEVOFLOXACIN
     Indication: PULMONARY TUBERCULOSIS
     Dosage: UNK
     Dates: start: 20141205, end: 20161110
  4. PREDONINE /00016203/ [Concomitant]
     Active Substance: PREDNISOLONE SODIUM SUCCINATE
     Dosage: 20 MG, UNK
     Dates: start: 20160203, end: 20161012
  5. NEOPHAGEN [Concomitant]
     Active Substance: GLYCYRRHIZIN
     Indication: HEPATIC FUNCTION ABNORMAL
     Dosage: UNK
  6. TAKECAB [Suspect]
     Active Substance: VONOPRAZAN FUMURATE
     Indication: PULMONARY TUBERCULOSIS
     Dosage: 20 MG, DAILY
     Route: 048
     Dates: start: 20161201
  7. NIPPAS CALCIUM [Suspect]
     Active Substance: AMINOSALICYLATE CALCIUM
     Dosage: 10 G, UNK
     Dates: start: 20170809, end: 20170821
  8. METHYLPREDNISOLONE NA SUCCINATE [Concomitant]
     Active Substance: METHYLPREDNISOLONE SODIUM SUCCINATE
     Dosage: 125 MG, UNK
     Dates: start: 20160202, end: 20160204
  9. DELTYBA [Suspect]
     Active Substance: DELAMANID
     Indication: TUBERCULOSIS
     Dosage: 200 MG, DAILY
     Route: 048
     Dates: start: 20161201
  10. SULPIRIDE [Suspect]
     Active Substance: SULPIRIDE
     Indication: PROPHYLAXIS
  11. ISONIAZID. [Concomitant]
     Active Substance: ISONIAZID
     Indication: PULMONARY TUBERCULOSIS
     Dosage: UNK
     Dates: start: 20141104, end: 20161110
  12. STREPTOMYCIN SULFATE. [Suspect]
     Active Substance: STREPTOMYCIN SULFATE
     Indication: TUBERCULOSIS
     Dosage: 750 MG, 2X/DAY
     Route: 030
     Dates: start: 20161114, end: 20170123
  13. TUBERMIN [Suspect]
     Active Substance: ETHIONAMIDE
     Indication: TUBERCULOSIS
     Dosage: 200 MG, DAILY
     Route: 048
     Dates: start: 20170510, end: 20170614
  14. ETHAMBUTOL DIHYDROCHLORIDE [Concomitant]
     Active Substance: ETHAMBUTOL HYDROCHLORIDE
     Indication: PULMONARY TUBERCULOSIS
     Dosage: UNK
     Dates: start: 20141104, end: 20161110
  15. MUCOSTA [Suspect]
     Active Substance: REBAMIPIDE
     Indication: PULMONARY TUBERCULOSIS
  16. MUCOSTA [Suspect]
     Active Substance: REBAMIPIDE
     Indication: PROPHYLAXIS
     Dosage: 300 MG, DAILY
     Route: 048
     Dates: start: 20161116, end: 20170329
  17. SULPIRIDE [Suspect]
     Active Substance: SULPIRIDE
     Indication: PULMONARY TUBERCULOSIS
     Dosage: 150 MG, DAILY
     Route: 048
     Dates: start: 20170304, end: 20170420
  18. NEOPHAGEN [Concomitant]
     Active Substance: GLYCYRRHIZIN
     Indication: HEPATIC FUNCTION ABNORMAL
     Dosage: UNK
  19. AVELOX [Concomitant]
     Active Substance: MOXIFLOXACIN HYDROCHLORIDE
     Indication: TUBERCULOSIS
     Dosage: UNK
     Dates: start: 20170301
  20. CARBOCISTEINE [Concomitant]
     Active Substance: CARBOCYSTEINE
     Indication: PULMONARY TUBERCULOSIS
     Dosage: UNK
     Dates: start: 20161116, end: 20170227
  21. MYCOBUTIN [Suspect]
     Active Substance: RIFABUTIN
     Indication: PULMONARY TUBERCULOSIS
     Dosage: 150 MG, DAILY
     Route: 048
     Dates: start: 20161114, end: 20170329
  22. LINEZOLID. [Suspect]
     Active Substance: LINEZOLID
     Indication: TUBERCULOSIS
     Dosage: 600 MG, DAILY
     Route: 048
     Dates: start: 20171101, end: 20180217
  23. PYRAZINAMIDE. [Suspect]
     Active Substance: PYRAZINAMIDE
     Dosage: 1000 MG, DAILY
     Route: 048
     Dates: start: 20161114, end: 20161219
  24. TAKECAB [Suspect]
     Active Substance: VONOPRAZAN FUMURATE
     Indication: PROPHYLAXIS
  25. RIFAMPICIN [Concomitant]
     Active Substance: RIFAMPIN
     Indication: PULMONARY TUBERCULOSIS
     Dosage: UNK
     Dates: start: 20141104, end: 20160105

REACTIONS (7)
  - Drug eruption [Not Recovered/Not Resolved]
  - Postrenal failure [Recovering/Resolving]
  - Hepatic function abnormal [Recovered/Resolved]
  - Decreased appetite [Recovered/Resolved]
  - Liver disorder [Recovering/Resolving]
  - Condition aggravated [Recovered/Resolved]
  - Gastrointestinal disorder [Recovered/Resolved]

NARRATIVE: CASE EVENT DATE: 20161212
